FAERS Safety Report 4543218-X (Version None)
Quarter: 2005Q1

REPORT INFORMATION
  Report Type: 
  Country: None (occurrence: None)
  Receive Date: 20050103
  Receipt Date: 20041223
  Transmission Date: 20050727
  Serious: Yes (Congenital Anomaly)
  Sender: FDA-Public Use
  Company Number: 200422443GDDC

PATIENT
  Sex: Female

DRUGS (2)
  1. CLOMID [Suspect]
     Route: 064
     Dates: start: 19960126
  2. FOLIC ACID [Concomitant]
     Dosage: DOSE: UNK

REACTIONS (6)
  - CONGENITAL EYE DISORDER [None]
  - CONGENITAL LACRIMAL PASSAGE ANOMALY [None]
  - CONGENITAL SALIVARY GLAND ANOMALY [None]
  - DRUG EXPOSURE DURING PREGNANCY [None]
  - PREMATURE BABY [None]
  - SYNDACTYLY [None]
